FAERS Safety Report 4407522-8 (Version None)
Quarter: 2004Q3

REPORT INFORMATION
  Report Type: 
  Country: None (occurrence: None)
  Receive Date: 20040721
  Receipt Date: 20040713
  Transmission Date: 20050211
  Serious: Yes (Death, Hospitalization)
  Sender: FDA-Public Use
  Company Number: F01200401665

PATIENT
  Age: 75 Year
  Sex: Male

DRUGS (7)
  1. OXALIPLATIN [Suspect]
     Indication: GASTROOESOPHAGEAL CANCER
     Dosage: 130 MG/M2 Q3W, INTRAVENOUS NOS
     Route: 042
     Dates: start: 20040524, end: 20040524
  2. CAPECITABINE [Suspect]
     Dosage: 500 MG/M2 BID
     Route: 048
     Dates: start: 20040326, end: 20040524
  3. EPIRUBICIN [Suspect]
     Dosage: 50 MG/M2 Q3W; A FEW MINS
     Route: 040
     Dates: start: 20040524, end: 20040524
  4. BECOTIDE    (BECLOMETASONE DIPROPIONATE) [Concomitant]
  5. VENTOLIN [Concomitant]
  6. LANSOPRAZOLE [Concomitant]
  7. METOCLOPRAMIDE [Concomitant]

REACTIONS (8)
  - FATIGUE [None]
  - FEELING ABNORMAL [None]
  - NAUSEA [None]
  - OESOPHAGEAL SQUAMOUS CELL CARCINOMA [None]
  - PULMONARY EMBOLISM [None]
  - SINUS TACHYCARDIA [None]
  - SUDDEN DEATH [None]
  - VOMITING [None]
